FAERS Safety Report 8162096-3 (Version None)
Quarter: 2012Q1

REPORT INFORMATION
  Report Type: 
  Country: None (occurrence: None)
  Receive Date: 20120221
  Receipt Date: 20120212
  Transmission Date: 20120608
  Serious: Yes (Disabling)
  Sender: FDA-Public Use
  Company Number: 2012SP008149

PATIENT
  Age: 54 Year
  Sex: Female

DRUGS (2)
  1. SAPHRIS [Suspect]
     Indication: PRODUCT USED FOR UNKNOWN INDICATION
     Dosage: 5 MG;QD; 10 MG;QD; 20 MG;BID; 5 MG;QD; 2.5 MG;QD
     Dates: start: 20111201
  2. SAPHRIS [Suspect]
     Indication: PRODUCT USED FOR UNKNOWN INDICATION
     Dosage: 5 MG;QD; 10 MG;QD; 20 MG;BID; 5 MG;QD; 2.5 MG;QD
     Dates: start: 20111001, end: 20111201

REACTIONS (4)
  - PARANOIA [None]
  - MANIA [None]
  - INCORRECT DOSE ADMINISTERED [None]
  - WRONG TECHNIQUE IN DRUG USAGE PROCESS [None]
